FAERS Safety Report 16652860 (Version 1)
Quarter: 2019Q3

REPORT INFORMATION
  Report Type: Spontaneous
  Country: GB (occurrence: GB)
  Receive Date: 20190731
  Receipt Date: 20190731
  Transmission Date: 20191004
  Serious: Yes (Death)
  Sender: FDA-Public Use
  Company Number: GB-ETHYPHARM-201901535

PATIENT
  Age: 39 Year
  Sex: Male

DRUGS (6)
  1. BUPRENORPHINE. [Suspect]
     Active Substance: BUPRENORPHINE
     Indication: DRUG REHABILITATION
     Dosage: UNK
     Route: 065
  2. PREGABALIN. [Interacting]
     Active Substance: PREGABALIN
     Indication: PRODUCT USED FOR UNKNOWN INDICATION
     Dosage: UNK
     Route: 065
  3. ALCOHOL. [Interacting]
     Active Substance: ALCOHOL
     Indication: PRODUCT USED FOR UNKNOWN INDICATION
     Dosage: UNK
     Route: 065
  4. CODEINE [Interacting]
     Active Substance: CODEINE
     Indication: PRODUCT USED FOR UNKNOWN INDICATION
     Dosage: UNK
     Route: 065
  5. DIAZEPAM. [Interacting]
     Active Substance: DIAZEPAM
     Indication: PRODUCT USED FOR UNKNOWN INDICATION
     Dosage: UNK
     Route: 065
  6. MORPHINE [Interacting]
     Active Substance: MORPHINE
     Indication: PRODUCT USED FOR UNKNOWN INDICATION
     Dosage: UNK
     Route: 065

REACTIONS (6)
  - Alcohol interaction [Fatal]
  - Intentional product misuse [Fatal]
  - Overdose [Fatal]
  - Product use in unapproved indication [Fatal]
  - Toxicity to various agents [Fatal]
  - Drug interaction [Fatal]
